FAERS Safety Report 11535036 (Version 1)
Quarter: 2015Q3

REPORT INFORMATION
  Report Type: Spontaneous
  Country: US (occurrence: None)
  Receive Date: 20150921
  Receipt Date: 20150921
  Transmission Date: 20151125
  Serious: Yes (Disabling)
  Sender: FDA-Public Use
  Company Number: None

PATIENT
  Age: 50 Year
  Sex: Female
  Weight: 65.77 kg

DRUGS (5)
  1. CYANOCOBALAMIN. [Concomitant]
     Active Substance: CYANOCOBALAMIN
  2. EPIPEN [Concomitant]
     Active Substance: EPINEPHRINE
  3. ADVIL [Concomitant]
     Active Substance: IBUPROFEN
  4. CIPROFLOXACIN HCL 250 MG [Suspect]
     Active Substance: CIPROFLOXACIN
     Indication: URINARY TRACT INFECTION
     Dosage: 6 PILLS TWICE DAILY TAKEN BY MOUTH
     Route: 048
     Dates: start: 20140501, end: 20140503
  5. VITAMIN D3 [Concomitant]
     Active Substance: CHOLECALCIFEROL

REACTIONS (9)
  - Vision blurred [None]
  - Pain [None]
  - Vitamin B12 deficiency [None]
  - Skin burning sensation [None]
  - Neuropathy peripheral [None]
  - Balance disorder [None]
  - Small fibre neuropathy [None]
  - Arthralgia [None]
  - Neurological symptom [None]

NARRATIVE: CASE EVENT DATE: 20140601
